FAERS Safety Report 20058007 (Version 3)
Quarter: 2021Q4

REPORT INFORMATION
  Report Type: Spontaneous
  Country: BR (occurrence: BR)
  Receive Date: 20211111
  Receipt Date: 20211116
  Transmission Date: 20220303
  Serious: Yes (Death)
  Sender: FDA-Public Use
  Company Number: BR-CELGENE-BRA-20211102980

PATIENT
  Sex: Male
  Weight: 60 kg

DRUGS (2)
  1. VIDAZA [Suspect]
     Active Substance: AZACITIDINE
     Indication: Leukaemia
     Route: 058
  2. VIDAZA [Suspect]
     Active Substance: AZACITIDINE
     Dosage: 2 APPLICATIONS A DAY FOR 7 DAYS WITHIN ONE MONTH CYCLE
     Route: 058
     Dates: start: 20190107, end: 20190621

REACTIONS (2)
  - COVID-19 [Fatal]
  - Leukaemia [Fatal]
